FAERS Safety Report 6725708-4 (Version None)
Quarter: 2010Q2

REPORT INFORMATION
  Report Type: 
  Country: None (occurrence: None)
  Receive Date: 20100514
  Receipt Date: 20100511
  Transmission Date: 20101027
  Serious: Yes (Other)
  Sender: FDA-Public Use
  Company Number: CHPA2010US08239

PATIENT
  Age: 11 Year
  Sex: Male
  Weight: 49.887 kg

DRUGS (5)
  1. TRIAMINIC FLU COUGH FEVER NO PSE (NCH) [Suspect]
     Indication: RHINORRHOEA
     Dosage: 2 TSP, TID
     Route: 048
     Dates: start: 20080101, end: 20080101
  2. TRIAMINIC FLU COUGH FEVER NO PSE (NCH) [Suspect]
     Indication: COUGH
  3. TRIAMINIC FLU COUGH FEVER NO PSE (NCH) [Suspect]
     Indication: PYREXIA
  4. ALBUTEROL [Concomitant]
     Indication: ASTHMA
     Dosage: UNK, UNK
  5. ALBUTEROL [Concomitant]
     Dosage: UNK, UNK
     Dates: start: 20080101, end: 20080101

REACTIONS (2)
  - DRUG INEFFECTIVE [None]
  - PULMONARY OEDEMA [None]
